FAERS Safety Report 24928819 (Version 2)
Quarter: 2025Q1

REPORT INFORMATION
  Report Type: Report from Study
  Country: US (occurrence: US)
  Receive Date: 20250205
  Receipt Date: 20250319
  Transmission Date: 20250409
  Serious: No
  Sender: SUNOVION
  Company Number: US-SUMITOMO PHARMA SWITZERLAND GMBH-2025SPA000933

PATIENT

DRUGS (2)
  1. ORGOVYX [Suspect]
     Active Substance: RELUGOLIX
     Indication: Prostate cancer
     Dosage: 120 MG, QD
     Route: 048
     Dates: start: 20250129
  2. XTANDI [Concomitant]
     Active Substance: ENZALUTAMIDE
     Dosage: 80 MG, BID
     Route: 065

REACTIONS (5)
  - Platelet count abnormal [Unknown]
  - Night sweats [Unknown]
  - Hot flush [Unknown]
  - Fatigue [Unknown]
  - Incorrect dose administered [Unknown]
